FAERS Safety Report 16641494 (Version 2)
Quarter: 2020Q2

REPORT INFORMATION
  Report Type: Spontaneous
  Country: SG (occurrence: SG)
  Receive Date: 20190729
  Receipt Date: 20200624
  Transmission Date: 20200713
  Serious: Yes (Hospitalization, Other)
  Sender: FDA-Public Use
  Company Number: SG-SUN PHARMACEUTICAL INDUSTRIES LTD-2019R1-214497

PATIENT
  Age: 2 Year
  Sex: Female

DRUGS (1)
  1. METHADONE [Suspect]
     Active Substance: METHADONE HYDROCHLORIDE
     Indication: PRODUCT USED FOR UNKNOWN INDICATION
     Dosage: UNK
     Route: 048

REACTIONS (5)
  - Accidental exposure to product [Recovered/Resolved]
  - Cyanosis [Recovered/Resolved]
  - Paralysis [Recovered/Resolved]
  - Toxic encephalopathy [Recovered/Resolved]
  - Pulse absent [Recovered/Resolved]
